FAERS Safety Report 9907010 (Version 1)
Quarter: 2014Q1

REPORT INFORMATION
  Report Type: Spontaneous
  Country: DE (occurrence: DE)
  Receive Date: 20140218
  Receipt Date: 20140218
  Transmission Date: 20141002
  Serious: Yes (Death)
  Sender: FDA-Public Use
  Company Number: DE-ACORDA-ACO_101820_2014

PATIENT
  Age: 45 Year
  Sex: Male

DRUGS (5)
  1. FAMPYRA [Suspect]
     Indication: PARAPARESIS
     Dosage: 10 MG, BID
     Route: 048
     Dates: start: 20110921, end: 20140119
  2. FAMPYRA [Suspect]
     Indication: MOBILITY DECREASED
  3. TAMSULOSIN [Concomitant]
     Indication: NEUROGENIC BLADDER
     Dosage: 0.4 MG, QD
     Route: 065
     Dates: start: 199808
  4. CLONAZEPAM [Concomitant]
     Indication: TREMOR
     Dosage: 2 DROPS, TID
     Route: 048
     Dates: start: 200812
  5. TADALAFIL [Concomitant]
     Indication: ERECTILE DYSFUNCTION
     Dosage: UNK, PRN
     Route: 065
     Dates: start: 201104

REACTIONS (1)
  - Death [Fatal]
